FAERS Safety Report 25613089 (Version 1)
Quarter: 2025Q3

REPORT INFORMATION
  Report Type: Spontaneous
  Country: US (occurrence: US)
  Receive Date: 20250728
  Receipt Date: 20250728
  Transmission Date: 20251021
  Serious: Yes (Hospitalization)
  Sender: GALPHARM INTERNATIONAL
  Company Number: US-PERRIGO-25US008950

PATIENT
  Sex: Male
  Weight: 49.887 kg

DRUGS (2)
  1. POLYETHYLENE GLYCOL 3350 [Suspect]
     Active Substance: POLYETHYLENE GLYCOL 3350
     Indication: Constipation prophylaxis
     Dosage: 17 G, QD
     Route: 048
     Dates: start: 2016, end: 20250704
  2. POLYETHYLENE GLYCOL 3350 [Suspect]
     Active Substance: POLYETHYLENE GLYCOL 3350
     Dosage: 17 G, QD
     Route: 048
     Dates: start: 20250709, end: 20250715

REACTIONS (4)
  - Condition aggravated [Recovered/Resolved]
  - Drug ineffective for unapproved indication [Recovered/Resolved]
  - Abnormal faeces [Not Recovered/Not Resolved]
  - Incorrect product administration duration [Unknown]

NARRATIVE: CASE EVENT DATE: 20160101
